FAERS Safety Report 6418261-6 (Version None)
Quarter: 2009Q4

REPORT INFORMATION
  Report Type: 
  Country: None (occurrence: None)
  Receive Date: 20091028
  Receipt Date: 20091019
  Transmission Date: 20100525
  Serious: Yes (Hospitalization)
  Sender: FDA-Public Use
  Company Number: SE-ASTRAZENECA-2009SE20872

PATIENT
  Age: 71 Year
  Sex: Male

DRUGS (6)
  1. OMEPRAZOLE [Suspect]
     Route: 065
     Dates: start: 20090209, end: 20090225
  2. METFORMIN HCL [Suspect]
     Indication: DIABETES MELLITUS
     Route: 065
     Dates: start: 20090209, end: 20090225
  3. UNSPECIFIED [Concomitant]
     Route: 065
  4. SIMVASTATIN [Concomitant]
     Route: 065
  5. TROMBYL [Concomitant]
     Route: 065
  6. LEVOTHYROXINE SODIUM [Concomitant]
     Route: 065

REACTIONS (1)
  - VASCULITIS NECROTISING [None]
